FAERS Safety Report 17774401 (Version 1)
Quarter: 2020Q2

REPORT INFORMATION
  Report Type: Spontaneous
  Country: ES (occurrence: ES)
  Receive Date: 20200513
  Receipt Date: 20200513
  Transmission Date: 20200714
  Serious: Yes (Hospitalization)
  Sender: FDA-Public Use
  Company Number: ES-TEVA-2020-ES-1232562

PATIENT
  Age: 90 Year
  Sex: Female

DRUGS (9)
  1. PARACETAMOL 1.000 MG 40 COMPRIMIDOS EFERVESCENTES [Concomitant]
     Indication: ROTATOR CUFF SYNDROME
     Dosage: 1000 MG
     Route: 048
     Dates: start: 20130114
  2. LEXATIN 1,5 MG CAPSULAS DURAS , 30 CAPSULAS [Concomitant]
     Indication: ANXIETY
     Dosage: 1.5 MG
     Route: 048
     Dates: start: 20081117
  3. METAMIZOL 575 MG 20 CAPSULAS [Concomitant]
     Indication: ROTATOR CUFF SYNDROME
     Dosage: 575 MG
     Route: 048
     Dates: start: 20130114
  4. RISPERIDONA 0,5 MG 56 COMPRIMIDOS [Concomitant]
     Indication: ANXIETY
     Dosage: 0.5 MG
     Route: 048
     Dates: start: 20170907
  5. GABAPENTINA 100 MG 90 CAPSULAS [Concomitant]
     Indication: DEMENTIA ALZHEIMER^S TYPE
     Dosage: 100 MG
     Route: 048
     Dates: start: 20190721
  6. CIPROFLOXACINO (2049A) [Suspect]
     Active Substance: CIPROFLOXACIN
     Indication: URINARY TRACT INFECTION
     Dosage: 500 MG
     Route: 048
     Dates: start: 20190828, end: 20190830
  7. RABEPRAZOL 20 MG 28 COMPRIMIDOS [Concomitant]
     Indication: PRODUCT USED FOR UNKNOWN INDICATION
     Dosage: 20 MG
     Route: 048
     Dates: start: 20131003
  8. OTILONIO BROMURO 40 MG 60 COMPRIMIDOS (PRODUCT) [Concomitant]
     Indication: ANXIETY
     Dosage: 40 MG
     Route: 048
     Dates: start: 20120808
  9. CITICOLINA 500 MG INYECTABLE 10 ML 10 AMPOLLAS (PRODUCTO) [Concomitant]
     Indication: PRODUCT USED FOR UNKNOWN INDICATION
     Dosage: 500 MG
     Dates: start: 20121031

REACTIONS (2)
  - Vasculitis [Recovered/Resolved]
  - Erythema [Recovered/Resolved]

NARRATIVE: CASE EVENT DATE: 20190830
